FAERS Safety Report 6088390-8 (Version None)
Quarter: 2009Q1

REPORT INFORMATION
  Report Type: 
  Country: None (occurrence: None)
  Receive Date: 20090224
  Receipt Date: 20090223
  Transmission Date: 20090719
  Serious: Yes (Other)
  Sender: FDA-Public Use
  Company Number: US-BAYER-200841299NA

PATIENT
  Sex: Female

DRUGS (1)
  1. MIRENA [Suspect]
     Indication: CONTRACEPTION
     Route: 015
     Dates: start: 20040324, end: 20081210

REACTIONS (3)
  - ANTEPARTUM HAEMORRHAGE [None]
  - PREGNANCY WITH CONTRACEPTIVE DEVICE [None]
  - VOMITING IN PREGNANCY [None]
